FAERS Safety Report 9820154 (Version 1)
Quarter: 2013Q4

REPORT INFORMATION
  Report Type: Spontaneous
  Country: US (occurrence: None)
  Receive Date: 20131021
  Receipt Date: 20131021
  Transmission Date: 20140711
  Serious: Yes (Death)
  Sender: FDA-Public Use
  Company Number: 2012SCPR004800

PATIENT
  Age: 75 Year
  Sex: Male

DRUGS (2)
  1. FENTANYL TRANSDERMAL SYSTEM [Suspect]
     Indication: BACK PAIN
     Dosage: 1 PATCH, EVERY 72 HOURS, TRANSDERMAL
     Dates: start: 20121207, end: 20121214
  2. SILVERSTATIN (SILVERSTATIN) [Concomitant]

REACTIONS (2)
  - Death [None]
  - Dyspnoea [None]
